FAERS Safety Report 11938050 (Version 1)
Quarter: 2016Q1

REPORT INFORMATION
  Report Type: Report from Study
  Country: CO (occurrence: CO)
  Receive Date: 20160122
  Receipt Date: 20160122
  Transmission Date: 20160526
  Serious: Yes (Death, Life-Threatening, Hospitalization)
  Sender: FDA-Public Use
  Company Number: CO-AMGEN-COLSL2016006033

PATIENT
  Age: 40 Year
  Sex: Male

DRUGS (1)
  1. VECTIBIX [Suspect]
     Active Substance: PANITUMUMAB
     Indication: COLORECTAL CANCER METASTATIC
     Dosage: 468 MG, 2 WEEKS
     Route: 042
     Dates: start: 20150414, end: 20160106

REACTIONS (2)
  - General physical health deterioration [Unknown]
  - Dyspnoea [Fatal]

NARRATIVE: CASE EVENT DATE: 20160116
